FAERS Safety Report 9266210 (Version 1)
Quarter: 2013Q2

REPORT INFORMATION
  Report Type: Spontaneous
  Country: US (occurrence: US)
  Receive Date: 20130502
  Receipt Date: 20130502
  Transmission Date: 20140414
  Serious: No
  Sender: FDA-Public Use
  Company Number: US-009507513-1304USA016645

PATIENT
  Sex: Female

DRUGS (1)
  1. NEXPLANON [Suspect]
     Indication: CONTRACEPTION
     Dosage: 1 ROD,1 STANDARD PACKAGE OF PF APPLI OF 1
     Route: 059
     Dates: start: 20121018

REACTIONS (4)
  - Headache [Unknown]
  - Device breakage [Unknown]
  - Device kink [Unknown]
  - Menorrhagia [Unknown]
